FAERS Safety Report 15625564 (Version 1)
Quarter: 2018Q4

REPORT INFORMATION
  Report Type: Spontaneous
  Country: US (occurrence: US)
  Receive Date: 20181115
  Receipt Date: 20181115
  Transmission Date: 20190205
  Serious: Yes (Death)
  Sender: FDA-Public Use
  Company Number: None

PATIENT
  Age: 57 Year
  Sex: Female
  Weight: 96.2 kg

DRUGS (2)
  1. VANCOMYCIN 1500MG/250ML [Concomitant]
     Dates: start: 20181114, end: 20181114
  2. CEFTRIAXONE. [Suspect]
     Active Substance: CEFTRIAXONE
     Dosage: ?          OTHER FREQUENCY:ONCE;?
     Route: 040
     Dates: start: 20181114, end: 20181114

REACTIONS (7)
  - Ventricular tachycardia [None]
  - Anxiety [None]
  - Unresponsive to stimuli [None]
  - Ventricular fibrillation [None]
  - Cardiac arrest [None]
  - Torsade de pointes [None]
  - Pruritus [None]

NARRATIVE: CASE EVENT DATE: 20181114
